FAERS Safety Report 6086607-7 (Version None)
Quarter: 2009Q1

REPORT INFORMATION
  Report Type: 
  Country: None (occurrence: None)
  Receive Date: 20090223
  Receipt Date: 20090210
  Transmission Date: 20090719
  Serious: Yes (Other)
  Sender: FDA-Public Use
  Company Number: US-PFIZER INC-2009170180

PATIENT
  Sex: Female

DRUGS (2)
  1. DILANTIN-125 [Suspect]
  2. PHENYTOIN [Suspect]

REACTIONS (3)
  - ACTIVITIES OF DAILY LIVING IMPAIRED [None]
  - CONVULSION [None]
  - DRUG INEFFECTIVE [None]
